FAERS Safety Report 7350224-9 (Version None)
Quarter: 2011Q1

REPORT INFORMATION
  Report Type: 
  Country: None (occurrence: None)
  Receive Date: 20110309
  Receipt Date: 20110309
  Transmission Date: 20110831
  Serious: Yes (Life-Threatening, Hospitalization, Disabling, Other)
  Sender: FDA-Public Use
  Company Number: None

PATIENT
  Age: 53 Year
  Sex: Male
  Weight: 120.2032 kg

DRUGS (4)
  1. VAHKAMIECINE [Concomitant]
  2. VAEHK [Concomitant]
  3. ROLAIDS [Suspect]
     Indication: GASTROOESOPHAGEAL REFLUX DISEASE
     Dosage: 2 FIVE OR 6 A DAY PO
     Route: 048
     Dates: start: 19850101
  4. ROLAIDS [Suspect]
     Indication: DYSPEPSIA
     Dosage: 2 FIVE OR 6 A DAY PO
     Route: 048
     Dates: start: 19850101

REACTIONS (4)
  - HEADACHE [None]
  - PRODUCT FORMULATION ISSUE [None]
  - CELLULITIS [None]
  - NAUSEA [None]
